FAERS Safety Report 7516753-X (Version None)
Quarter: 2011Q2

REPORT INFORMATION
  Report Type: 
  Country: None (occurrence: None)
  Receive Date: 20110601
  Receipt Date: 20110523
  Transmission Date: 20111010
  Serious: Yes (Other)
  Sender: FDA-Public Use
  Company Number: ES-BRISTOL-MYERS SQUIBB COMPANY-15714215

PATIENT
  Age: 36 Year
  Sex: Female

DRUGS (1)
  1. ABATACEPT [Suspect]
     Indication: RHEUMATOID ARTHRITIS
     Route: 042
     Dates: start: 20080325

REACTIONS (2)
  - PYREXIA [None]
  - TRAUMATIC FRACTURE [None]
